FAERS Safety Report 24033765 (Version 1)
Quarter: 2024Q3

REPORT INFORMATION
  Report Type: Spontaneous
  Country: US (occurrence: None)
  Receive Date: 20240701
  Receipt Date: 20240701
  Transmission Date: 20241017
  Serious: Yes (Disabling)
  Sender: ASTRAZENECA
  Company Number: 2024A144352

PATIENT
  Age: 30572 Day
  Sex: Male
  Weight: 72.6 kg

DRUGS (5)
  1. FARXIGA [Suspect]
     Active Substance: DAPAGLIFLOZIN PROPANEDIOL
     Indication: Renal disorder
     Route: 048
     Dates: start: 20220304, end: 20240615
  2. SULTOPRIDE HYDROCHLORIDE [Suspect]
     Active Substance: SULTOPRIDE HYDROCHLORIDE
  3. LOSARTAN [Suspect]
     Active Substance: LOSARTAN
  4. XARELTO [Suspect]
     Active Substance: RIVAROXABAN
  5. VITAMIN D [Suspect]
     Active Substance: VITAMIN D NOS

REACTIONS (4)
  - Rhinitis [Not Recovered/Not Resolved]
  - Rash [Not Recovered/Not Resolved]
  - Back pain [Not Recovered/Not Resolved]
  - Back pain [Unknown]

NARRATIVE: CASE EVENT DATE: 20240205
